FAERS Safety Report 14787824 (Version 2)
Quarter: 2018Q2

REPORT INFORMATION
  Report Type: Spontaneous
  Country: US (occurrence: US)
  Receive Date: 20180422
  Receipt Date: 20180423
  Transmission Date: 20180711
  Serious: No
  Sender: FDA-Public Use
  Company Number: US-TEVA-2018-US-881518

PATIENT
  Age: 50 Year
  Sex: Female

DRUGS (2)
  1. FENTANYL. [Suspect]
     Active Substance: FENTANYL
     Indication: NECK PAIN
  2. FENTANYL. [Suspect]
     Active Substance: FENTANYL
     Indication: BACK PAIN
     Dosage: DOSE STRENGTH:  50MCG 5
     Route: 065

REACTIONS (5)
  - Pain [Unknown]
  - Muscular weakness [Unknown]
  - Wrong technique in product usage process [Unknown]
  - Migraine [Unknown]
  - Hypoaesthesia [Unknown]

NARRATIVE: CASE EVENT DATE: 2005
